FAERS Safety Report 7308024-1 (Version None)
Quarter: 2011Q1

REPORT INFORMATION
  Report Type: 
  Country: None (occurrence: None)
  Receive Date: 20110223
  Receipt Date: 20100817
  Transmission Date: 20110831
  Serious: Yes (Other)
  Sender: FDA-Public Use
  Company Number: US-BAYER-200935881NA

PATIENT
  Sex: Female

DRUGS (7)
  1. VALTREX [Concomitant]
     Dosage: 1 MG, UNK
     Route: 048
     Dates: start: 20090409
  2. YAZ [Suspect]
     Indication: PREMENSTRUAL SYNDROME
     Dosage: UNK
     Route: 048
     Dates: start: 20050101, end: 20080101
  3. NORA-BE [Concomitant]
     Dosage: UNK
     Dates: start: 20090721
  4. YAZ [Suspect]
     Dosage: UNK
     Dates: start: 20071115, end: 20080813
  5. ZOLPIDEM TARTRATE [Concomitant]
     Dosage: 10 MG, UNK
     Route: 048
     Dates: start: 20090605
  6. TERBUTALINE SULFATE [Concomitant]
     Dosage: 2.5 MG, UNK
     Route: 048
     Dates: start: 20090414
  7. NIFEDIPINE [Concomitant]
     Dosage: 10 MG, UNK
     Route: 048
     Dates: start: 20090416

REACTIONS (4)
  - CHOLECYSTITIS CHRONIC [None]
  - GALLBLADDER CHOLESTEROLOSIS [None]
  - BILIARY COLIC [None]
  - ABDOMINAL PAIN UPPER [None]
